FAERS Safety Report 5644510-8 (Version None)
Quarter: 2008Q1

REPORT INFORMATION
  Report Type: 
  Country: None (occurrence: None)
  Receive Date: 20080229
  Receipt Date: 20070131
  Transmission Date: 20080703
  Serious: No
  Sender: FDA-Public Use
  Company Number: A0637821A

PATIENT
  Age: 30 Year
  Sex: Female

DRUGS (3)
  1. VALTREX [Suspect]
     Dosage: 1G TWICE PER DAY
     Route: 048
     Dates: start: 20060101, end: 20070130
  2. SYNTHROID [Concomitant]
  3. THERAFLU [Concomitant]

REACTIONS (2)
  - RASH [None]
  - SWELLING [None]
